FAERS Safety Report 24086518 (Version 1)
Quarter: 2024Q3

REPORT INFORMATION
  Report Type: Spontaneous
  Country: DE (occurrence: DE)
  Receive Date: 20240713
  Receipt Date: 20240713
  Transmission Date: 20241016
  Serious: Yes (Congenital Anomaly, Other)
  Sender: TEVA
  Company Number: DE-EMBRYOTOX-202301664-B

PATIENT
  Sex: Female
  Weight: 3.41 kg

DRUGS (3)
  1. CLOZAPINE [Suspect]
     Active Substance: CLOZAPINE
     Indication: Schizophrenia
     Dosage: 500 [MG/D ]/ 75-100-75-250
     Route: 064
     Dates: start: 20221214, end: 20231002
  2. LEVOTHYROXINE SODIUM [Concomitant]
     Active Substance: LEVOTHYROXINE SODIUM
     Indication: Hypothyroidism
     Dosage: 25 [?G/D ]
     Route: 064
     Dates: start: 20221214, end: 20231002
  3. ARIPIPRAZOLE [Suspect]
     Active Substance: ARIPIPRAZOLE
     Indication: Schizophrenia
     Dosage: 20 [MG/D ]
     Route: 064
     Dates: start: 20221214, end: 20231002

REACTIONS (3)
  - Congenital nystagmus [Not Recovered/Not Resolved]
  - Foetal exposure during pregnancy [Unknown]
  - Congenital eye disorder [Not Recovered/Not Resolved]
